FAERS Safety Report 10793379 (Version 3)
Quarter: 2015Q2

REPORT INFORMATION
  Report Type: Spontaneous
  Country: US (occurrence: US)
  Receive Date: 20150213
  Receipt Date: 20150421
  Transmission Date: 20150821
  Serious: Yes (Other)
  Sender: FDA-Public Use
  Company Number: US-AMGEN-USASP2015013044

PATIENT
  Age: 66 Year
  Sex: Female
  Weight: 79.37 kg

DRUGS (1)
  1. PROCRIT [Suspect]
     Active Substance: ERYTHROPOIETIN
     Indication: HAEMOGLOBIN DECREASED
     Dosage: 40000 UNIT 1X1ML VIAL WEEKLY
     Route: 058
     Dates: start: 20111228

REACTIONS (3)
  - Haemoglobin decreased [Unknown]
  - Skin cancer [Unknown]
  - Treatment noncompliance [Not Recovered/Not Resolved]

NARRATIVE: CASE EVENT DATE: 2013
